FAERS Safety Report 4839847-6 (Version None)
Quarter: 2005Q4

REPORT INFORMATION
  Report Type: 
  Country: None (occurrence: None)
  Receive Date: 20051125
  Receipt Date: 20051115
  Transmission Date: 20060501
  Serious: Yes (Other)
  Sender: FDA-Public Use
  Company Number: HQWYE627618NOV05

PATIENT
  Sex: Male

DRUGS (2)
  1. EFFEXOR [Suspect]
     Indication: DEPRESSION
     Dosage: 75 MG 1X PER 1 DAY
     Dates: start: 19961101
  2. EPILIM (VALPROATE SODIUM) [Suspect]
     Indication: DEPRESSION
     Dosage: 1.5 G 1X PER 1 DAY
     Route: 048
     Dates: start: 19960401

REACTIONS (4)
  - ANKYLOGLOSSIA CONGENITAL [None]
  - ANORECTAL DISORDER [None]
  - DRUG EXPOSURE DURING PREGNANCY [None]
  - HAEMANGIOMA CONGENITAL [None]
